FAERS Safety Report 6881393-2 (Version None)
Quarter: 2010Q3

REPORT INFORMATION
  Report Type: 
  Country: None (occurrence: None)
  Receive Date: 20100728
  Receipt Date: 20100728
  Transmission Date: 20110219
  Serious: Yes (Death)
  Sender: FDA-Public Use
  Company Number: None

PATIENT
  Sex: Female
  Weight: 88.2 kg

DRUGS (1)
  1. TEMOZOLOMIDE [Suspect]
     Indication: GLIOBLASTOMA
     Dosage: 185 MG DAILY X 21 DAYS PO
     Route: 048
     Dates: start: 20091003, end: 20091121

REACTIONS (1)
  - NEUROLOGICAL DECOMPENSATION [None]
